FAERS Safety Report 6946005-8 (Version None)
Quarter: 2010Q3

REPORT INFORMATION
  Report Type: 
  Country: None (occurrence: None)
  Receive Date: 20100827
  Receipt Date: 20090918
  Transmission Date: 20110219
  Serious: No
  Sender: FDA-Public Use
  Company Number: A0806405A

PATIENT
  Sex: Female

DRUGS (4)
  1. ACYCLOVIR SODIUM [Suspect]
     Route: 065
  2. PREDNISONE [Suspect]
     Route: 065
  3. NEURONTIN [Suspect]
     Route: 065
  4. ANTIVIRAL [Suspect]
     Route: 065

REACTIONS (1)
  - DRUG INEFFECTIVE [None]
